FAERS Safety Report 4660789-3 (Version None)
Quarter: 2005Q2

REPORT INFORMATION
  Report Type: 
  Country: None (occurrence: None)
  Receive Date: 20050511
  Receipt Date: 20050504
  Transmission Date: 20051028
  Serious: Yes (Life-Threatening, Hospitalization)
  Sender: FDA-Public Use
  Company Number: 211868

PATIENT
  Age: 56 Year
  Sex: Female
  Weight: 75.7 kg

DRUGS (9)
  1. AVASTIN [Suspect]
     Indication: COLON CANCER
     Dosage: 386 MG, INTRAVENOUS
     Route: 042
     Dates: start: 20040908
  2. ERLOTINIB (ERLOTINIB) TABLET, 100MG [Suspect]
     Indication: COLON CANCER
     Dosage: 100 MG, ORAL
     Route: 048
     Dates: start: 20040908
  3. OXALIPLATIN (OXALIPLATIN) [Suspect]
     Indication: COLON CANCER
     Dosage: 122 MG, INTRAVENOUS
     Route: 042
     Dates: start: 20041208
  4. FLUOROURACIL [Suspect]
     Indication: COLON CANCER
     Dosage: SEE IMAGE, INTRAVENOUS
     Route: 042
     Dates: start: 20040908
  5. LEUCOVORIN CALCIUM [Suspect]
     Indication: COLON CANCER
     Dosage: 376 MG, INTRAVENOUS
     Route: 042
     Dates: start: 20040908
  6. PEPCID [Concomitant]
  7. PREMARIN [Concomitant]
  8. LOMOTIL [Concomitant]
  9. COUMADIN [Concomitant]

REACTIONS (1)
  - BACTERIAL SEPSIS [None]
